FAERS Safety Report 5241047-5 (Version None)
Quarter: 2007Q1

REPORT INFORMATION
  Report Type: 
  Country: None (occurrence: None)
  Receive Date: 20070214
  Receipt Date: 20070214
  Transmission Date: 20070707
  Serious: No
  Sender: FDA-Public Use
  Company Number: None

PATIENT
  Age: 64 Year
  Sex: Male

DRUGS (1)
  1. ERBITUX [Suspect]
     Indication: NEOPLASM MALIGNANT
     Dosage: 400 MG (250MG/M2) WEEKLY IV
     Route: 042
     Dates: start: 20061214, end: 20070118

REACTIONS (1)
  - CONJUNCTIVITIS [None]
